FAERS Safety Report 4478891-8 (Version None)
Quarter: 2004Q4

REPORT INFORMATION
  Report Type: 
  Country: None (occurrence: None)
  Receive Date: 20041015
  Receipt Date: 20040930
  Transmission Date: 20050328
  Serious: Yes (Hospitalization)
  Sender: FDA-Public Use
  Company Number: F02200400066

PATIENT
  Age: 73 Year
  Sex: Male

DRUGS (6)
  1. XATRAL - (ALFUZOSIN) - TABLET PR - 10 MG [Suspect]
     Indication: BENIGN PROSTATIC HYPERPLASIA
     Dosage: 10 MG OD ORAL
     Route: 048
     Dates: start: 20001130, end: 20040411
  2. POTASSIUM CHLORIDE [Concomitant]
  3. SIMVASTATIN [Concomitant]
  4. INDAPAMIDE [Concomitant]
  5. ACETAMINOPHEN [Concomitant]
  6. TRANDATE [Concomitant]

REACTIONS (4)
  - DRUG INEFFECTIVE [None]
  - INCONTINENCE [None]
  - MICTURITION DISORDER [None]
  - PROSTATE CANCER [None]
